FAERS Safety Report 24059705 (Version 1)
Quarter: 2024Q3

REPORT INFORMATION
  Report Type: Spontaneous
  Country: US (occurrence: US)
  Receive Date: 20240708
  Receipt Date: 20240708
  Transmission Date: 20241017
  Serious: Yes (Other)
  Sender: MYLAN
  Company Number: US-MYLANLABS-2024M1058367

PATIENT
  Age: 29 Year
  Sex: Female
  Weight: 72.57 kg

DRUGS (1)
  1. XULANE [Suspect]
     Active Substance: ETHINYL ESTRADIOL\NORELGESTROMIN
     Indication: Contraception
     Dosage: 150/35 MICROGRAM, QD (ONCE WEEKLY)
     Route: 062
     Dates: start: 20240415

REACTIONS (3)
  - Pregnancy with contraceptive patch [Unknown]
  - Maternal exposure during pregnancy [Unknown]
  - Product adhesion issue [Unknown]

NARRATIVE: CASE EVENT DATE: 20240401
